FAERS Safety Report 9426740 (Version 1)
Quarter: 2013Q3

REPORT INFORMATION
  Report Type: Spontaneous
  Country: US (occurrence: US)
  Receive Date: 20130730
  Receipt Date: 20130730
  Transmission Date: 20140515
  Serious: Yes (Life-Threatening, Hospitalization)
  Sender: FDA-Public Use
  Company Number: US-SANOFI-AVENTIS-2012SA090386

PATIENT
  Age: 77 Year
  Sex: Female
  Weight: 73.8 kg

DRUGS (24)
  1. AMBIEN [Suspect]
     Indication: INSOMNIA
     Route: 065
  2. ORLISTAT [Concomitant]
     Indication: OBESITY
  3. SERTRALINE [Concomitant]
     Indication: DEPRESSION
  4. LISINOPRIL [Concomitant]
     Indication: HYPERTENSION
  5. LOVASTATIN [Concomitant]
     Indication: BLOOD CHOLESTEROL INCREASED
  6. ANASTROZOLE [Concomitant]
     Indication: BREAST CANCER
  7. ACCOLATE [Concomitant]
     Indication: ASTHMA
  8. ASPIRIN [Concomitant]
     Indication: CARDIOVASCULAR EVENT PROPHYLAXIS
  9. VERAPAMIL [Concomitant]
     Indication: HYPERTENSION
  10. LEVOXYL [Concomitant]
     Indication: HYPOTHYROIDISM
  11. TRIAMTERENE [Concomitant]
     Indication: HYPERTENSION
  12. ADVAIR DISKUS [Concomitant]
     Indication: ASTHMA
  13. CELEXA [Concomitant]
     Indication: DEPRESSION
  14. LYRICA [Concomitant]
     Indication: PAIN
  15. ALBUTEROL [Concomitant]
     Indication: ASTHMA
     Dosage: DOSE: 2 PUFF
  16. GLIPIZIDE [Concomitant]
     Indication: DIABETES MELLITUS
  17. CALCIUM [Concomitant]
     Indication: NUTRITIONAL SUPPLEMENTATION
  18. IPRATROPIUM BROMIDE/SALBUTAMOL SULFATE [Concomitant]
     Indication: ASTHMA
  19. COLACE [Concomitant]
     Indication: CONSTIPATION
  20. IRON [Concomitant]
     Indication: ANAEMIA
     Dates: start: 20101112
  21. ALLEGRA [Concomitant]
     Indication: HYPERSENSITIVITY
  22. ZYRTEC [Concomitant]
     Indication: HYPERSENSITIVITY
  23. AMIODARONE [Concomitant]
     Indication: ATRIAL FIBRILLATION
     Dates: start: 201104
  24. COUMADIN [Concomitant]
     Indication: ATRIAL FIBRILLATION
     Dates: start: 201104

REACTIONS (1)
  - Overdose [Recovered/Resolved]
